FAERS Safety Report 8497261-9 (Version None)
Quarter: 2012Q3

REPORT INFORMATION
  Report Type: 
  Country: None (occurrence: None)
  Receive Date: 20120709
  Receipt Date: 20120607
  Transmission Date: 20120928
  Serious: No
  Sender: FDA-Public Use
  Company Number: US-AMGEN-USASP2012035834

PATIENT
  Age: 17 Year
  Sex: Female

DRUGS (1)
  1. ENBREL [Suspect]
     Indication: JUVENILE ARTHRITIS
     Dosage: 50 MG, QWK
     Dates: start: 20070401, end: 20120501

REACTIONS (4)
  - TONSILLECTOMY [None]
  - OROPHARYNGEAL PAIN [None]
  - EAR PAIN [None]
  - ADENOIDECTOMY [None]
